FAERS Safety Report 9928207 (Version 1)
Quarter: 2014Q1

REPORT INFORMATION
  Report Type: Spontaneous
  Country: US (occurrence: None)
  Receive Date: 20140226
  Receipt Date: 20140226
  Transmission Date: 20141002
  Serious: Yes (Disabling)
  Sender: FDA-Public Use
  Company Number: None

PATIENT
  Age: 53 Year
  Sex: Female
  Weight: 54.43 kg

DRUGS (1)
  1. OMEPRAZOLE [Suspect]
     Indication: BARRETT^S OESOPHAGUS
     Dosage: 1 PILL  ONCE DAILY TAKEN BY MOUTH
     Route: 048
     Dates: start: 20120601, end: 20131110

REACTIONS (4)
  - Chest pain [None]
  - Dysphagia [None]
  - Oesophageal achalasia [None]
  - Weight decreased [None]
